FAERS Safety Report 5391740-9 (Version None)
Quarter: 2007Q3

REPORT INFORMATION
  Report Type: 
  Country: None (occurrence: None)
  Receive Date: 20070717
  Receipt Date: 20050630
  Transmission Date: 20080115
  Serious: Yes (Death, Hospitalization)
  Sender: FDA-Public Use
  Company Number: 2005001223

PATIENT
  Age: 73 Year
  Sex: Female

DRUGS (4)
  1. ERLOTINIB HCL (TABLET) (ERLOTINIB HCL) [Suspect]
     Indication: NON-SMALL CELL LUNG CANCER
     Dosage: 150 MG (QD), ORAL
     Route: 048
     Dates: start: 20050605, end: 20050620
  2. MERCAPTOPURINE [Concomitant]
  3. BEZAFIBRATE (BEZAFIBRATE) [Concomitant]
  4. ATORVASTATIN CALCIUM [Concomitant]

REACTIONS (4)
  - GASTROENTERITIS [None]
  - GENERAL PHYSICAL HEALTH DETERIORATION [None]
  - HYPOKALAEMIA [None]
  - PULMONARY EMBOLISM [None]
